FAERS Safety Report 14573933 (Version 1)
Quarter: 2018Q1

REPORT INFORMATION
  Report Type: Spontaneous
  Country: FR (occurrence: FR)
  Receive Date: 20180226
  Receipt Date: 20180226
  Transmission Date: 20180509
  Serious: Yes (Other)
  Sender: FDA-Public Use
  Company Number: FR-PFIZER INC-2018075646

PATIENT
  Age: 67 Year
  Sex: Female
  Weight: 60 kg

DRUGS (2)
  1. AROMASINE [Suspect]
     Active Substance: EXEMESTANE
     Indication: BREAST CANCER
     Dosage: 1 DF, UNK
     Route: 048
     Dates: start: 20171120
  2. AFINITOR [Suspect]
     Active Substance: EVEROLIMUS
     Indication: BREAST CANCER
     Dosage: 1 DF, UNK
     Route: 048
     Dates: start: 20171120, end: 20180118

REACTIONS (3)
  - Interstitial lung disease [Not Recovered/Not Resolved]
  - Cough [Not Recovered/Not Resolved]
  - Dyspnoea [Not Recovered/Not Resolved]

NARRATIVE: CASE EVENT DATE: 20171201
